FAERS Safety Report 24604899 (Version 4)
Quarter: 2025Q1

REPORT INFORMATION
  Report Type: Spontaneous
  Country: US (occurrence: US)
  Receive Date: 20241111
  Receipt Date: 20250122
  Transmission Date: 20250408
  Serious: No
  Sender: PFIZER
  Company Number: US-PFIZER INC-202400293501

PATIENT
  Age: 63 Year
  Sex: Male
  Weight: 103.42 kg

DRUGS (2)
  1. GENOTROPIN [Suspect]
     Active Substance: SOMATROPIN
     Indication: Growth hormone deficiency
     Dosage: 0.7 MG, DAILY
  2. GENOTROPIN [Suspect]
     Active Substance: SOMATROPIN
     Dates: start: 202409

REACTIONS (6)
  - Drug dose omission by device [Unknown]
  - Device use error [Unknown]
  - Device calibration failure [Unknown]
  - Device leakage [Unknown]
  - Device breakage [Unknown]
  - Device malfunction [Unknown]
